FAERS Safety Report 20645768 (Version 2)
Quarter: 2022Q4

REPORT INFORMATION
  Report Type: Spontaneous
  Country: US (occurrence: US)
  Receive Date: 20220328
  Receipt Date: 20221024
  Transmission Date: 20230112
  Serious: Yes (Other)
  Sender: FDA-Public Use
  Company Number: US-BoehringerIngelheim-2022-BI-161197

PATIENT
  Sex: Male

DRUGS (1)
  1. JARDIANCE [Suspect]
     Active Substance: EMPAGLIFLOZIN
     Indication: Blood glucose abnormal
     Route: 048

REACTIONS (10)
  - Retinal detachment [Unknown]
  - Osteomyelitis [Unknown]
  - Type 1 diabetes mellitus [Unknown]
  - Visual impairment [Unknown]
  - Type 2 diabetes mellitus [Unknown]
  - Hypoaesthesia [Unknown]
  - Blood glucose increased [Unknown]
  - Exercise lack of [Unknown]
  - Diabetic retinopathy [Unknown]
  - Wound [Unknown]
